FAERS Safety Report 14074348 (Version 5)
Quarter: 2018Q2

REPORT INFORMATION
  Report Type: Spontaneous
  Country: JP (occurrence: JP)
  Receive Date: 20171011
  Receipt Date: 20180412
  Transmission Date: 20180711
  Serious: Yes (Other)
  Sender: FDA-Public Use
  Company Number: JP-GLAXOSMITHKLINE-JP2017JPN153179

PATIENT
  Age: 81 Year
  Sex: Female

DRUGS (10)
  1. LAMICTAL [Suspect]
     Active Substance: LAMOTRIGINE
     Indication: EPILEPSY
     Dosage: 25 MG, QD
     Route: 048
     Dates: start: 20170911, end: 20171016
  2. GASTER [Concomitant]
     Active Substance: FAMOTIDINE
     Dosage: 10 MG, 1D
  3. DENOTAS [Concomitant]
     Active Substance: CALCIUM CARBONATE\CHOLECALCIFEROL\MAGNESIUM CARBONATE
     Dosage: UNK
  4. LEDERCORT [Concomitant]
     Dosage: UNK
  5. LOXONIN PAP [Concomitant]
     Dosage: UNK
  6. LOXONIN TABLETS [Concomitant]
     Active Substance: LOXOPROFEN SODIUM
     Dosage: UNK
  7. PRALIA [Concomitant]
     Active Substance: DENOSUMAB
     Dosage: UNK
  8. BETAHISTINE MESILATE [Concomitant]
     Active Substance: BETAHISTINE MESILATE
     Dosage: UNK
  9. ADETPHOS [Concomitant]
     Active Substance: ADENOSINE TRIPHOSPHATE
     Dosage: UNK
  10. ALOSENN [Concomitant]
     Active Substance: SENNA LEAF
     Dosage: UNK

REACTIONS (4)
  - Rash erythematous [Recovered/Resolved]
  - Haemorrhage subcutaneous [Recovered/Resolved]
  - Hepatic function abnormal [Recovered/Resolved]
  - Purpura [Recovering/Resolving]

NARRATIVE: CASE EVENT DATE: 20170928
